FAERS Safety Report 4611005-X (Version None)
Quarter: 2005Q2

REPORT INFORMATION
  Report Type: 
  Country: None (occurrence: None)
  Receive Date: 20050303
  Receipt Date: 20050125
  Transmission Date: 20051028
  Serious: Yes (Other)
  Sender: FDA-Public Use
  Company Number: 2005BI001889

PATIENT
  Age: 85 Year
  Sex: Male

DRUGS (2)
  1. AMEVIVE [Suspect]
     Indication: PSORIASIS
     Dosage: 15 MG;QW;IM
     Route: 030
     Dates: start: 20040116, end: 20040409
  2. AMEVIVE [Suspect]
     Indication: PSORIASIS
     Dosage: 15 MG;QW;IM
     Route: 030
     Dates: start: 20040702, end: 20041004

REACTIONS (4)
  - BASAL CELL CARCINOMA [None]
  - POSTOPERATIVE INFECTION [None]
  - SKIN INJURY [None]
  - SQUAMOUS CELL CARCINOMA OF SKIN [None]
